FAERS Safety Report 17299589 (Version 2)
Quarter: 2020Q1

REPORT INFORMATION
  Report Type: Report from Study
  Country: ES (occurrence: ES)
  Receive Date: 20200121
  Receipt Date: 20200206
  Transmission Date: 20200409
  Serious: No
  Sender: FDA-Public Use
  Company Number: ES-EXELIXIS-XL18419023871

PATIENT
  Age: 66 Year
  Sex: Female

DRUGS (2)
  1. CABOZANTINIB [Suspect]
     Active Substance: CABOZANTINIB
     Indication: RENAL CELL CARCINOMA
     Dosage: 40 MG, QD
     Route: 048
     Dates: start: 20190722, end: 20190820
  2. CABOZANTINIB [Suspect]
     Active Substance: CABOZANTINIB
     Dosage: 20 MG, QD
     Route: 048
     Dates: start: 20190910, end: 20191021

REACTIONS (5)
  - Urticaria [Recovered/Resolved]
  - Tooth abscess [Recovered/Resolved]
  - Tinnitus [Recovering/Resolving]
  - Gingival pain [Recovered/Resolved]
  - Hypertension [Recovering/Resolving]

NARRATIVE: CASE EVENT DATE: 20190806
